FAERS Safety Report 7627001-4 (Version None)
Quarter: 2011Q3

REPORT INFORMATION
  Report Type: 
  Country: None (occurrence: None)
  Receive Date: 20110721
  Receipt Date: 20110606
  Transmission Date: 20111222
  Serious: Yes (Hospitalization)
  Sender: FDA-Public Use
  Company Number: FR-MERCK-1106FRA00068

PATIENT
  Age: 60 Year
  Sex: Male

DRUGS (5)
  1. TEICOPLANIN [Concomitant]
     Route: 065
  2. AMIKACIN [Concomitant]
     Route: 065
  3. PIPERACILLIN SODIUM AND TAZOBACTAM SODIUM [Concomitant]
     Route: 065
  4. PRIMAXIN [Suspect]
     Route: 041
  5. COLISTIN [Concomitant]
     Route: 065

REACTIONS (4)
  - PNEUMONIA KLEBSIELLA [None]
  - URINARY TRACT INFECTION [None]
  - FEBRILE INFECTION [None]
  - SEPSIS [None]
